FAERS Safety Report 9733419 (Version 1)
Quarter: 2013Q4

REPORT INFORMATION
  Report Type: Spontaneous
  Country: FR (occurrence: FR)
  Receive Date: 20131205
  Receipt Date: 20131205
  Transmission Date: 20140711
  Serious: Yes (Hospitalization)
  Sender: FDA-Public Use
  Company Number: FR-PFIZER INC-2013346731

PATIENT
  Age: 85 Year
  Sex: Male

DRUGS (5)
  1. AMIODARONE HCL [Suspect]
     Dosage: 200 MG, DAILY
     Route: 048
     Dates: start: 2000
  2. PREVISCAN [Concomitant]
     Dosage: UNK
     Dates: start: 2000
  3. OLMETEC [Concomitant]
     Dosage: UNK
     Dates: start: 2000
  4. ZANIDIP [Concomitant]
     Dosage: UNK
     Dates: start: 2000
  5. MESTINON [Concomitant]
     Dosage: UNK
     Dates: start: 2002

REACTIONS (3)
  - Extrapyramidal disorder [Not Recovered/Not Resolved]
  - Neuropathy peripheral [Not Recovered/Not Resolved]
  - Ocular myasthenia [Not Recovered/Not Resolved]
